FAERS Safety Report 4701004-1 (Version None)
Quarter: 2005Q2

REPORT INFORMATION
  Report Type: 
  Country: None (occurrence: None)
  Receive Date: 20050628
  Receipt Date: 20040705
  Transmission Date: 20051028
  Serious: Yes (Hospitalization, Other)
  Sender: FDA-Public Use
  Company Number: IT-BRISTOL-MYERS SQUIBB COMPANY-12632352

PATIENT
  Age: 33 Year
  Sex: Female

DRUGS (6)
  1. ATAZANAVIR [Suspect]
     Indication: HIV INFECTION
     Route: 048
     Dates: start: 20040421, end: 20040701
  2. STAVUDINE [Suspect]
     Indication: HIV INFECTION
     Dates: start: 20010614
  3. LOPINAVIR [Suspect]
     Indication: HIV INFECTION
     Dates: start: 20040811
  4. LAMIVUDINE [Suspect]
     Indication: HIV INFECTION
     Dates: start: 20010614
  5. AMITRIPTYLINE HCL [Concomitant]
     Dates: start: 20040622, end: 20040701
  6. IBUPROFEN [Concomitant]
     Dates: start: 20040421, end: 20040701

REACTIONS (5)
  - CHOLESTASIS [None]
  - NORMAL NEWBORN [None]
  - PREGNANCY [None]
  - PREMATURE BABY [None]
  - PREMATURE RUPTURE OF MEMBRANES [None]
